FAERS Safety Report 5078771-3 (Version None)
Quarter: 2006Q3

REPORT INFORMATION
  Report Type: 
  Country: None (occurrence: None)
  Receive Date: 20060809
  Receipt Date: 20060803
  Transmission Date: 20061208
  Serious: Yes (Life-Threatening, Hospitalization, Other)
  Sender: FDA-Public Use
  Company Number: 200613330GDS

PATIENT
  Age: 52 Year
  Sex: Male

DRUGS (4)
  1. APROTININ [Suspect]
     Indication: MEDIASTINAL HAEMORRHAGE
     Dosage: 3000000 U, TOTAL DAILY
  2. APROTININ [Suspect]
     Indication: POST PROCEDURAL HAEMORRHAGE
     Dosage: 3000000 U, TOTAL DAILY
  3. DESMOPRESSIN ACETATE [Concomitant]
  4. EPSILON-AMINOCAPROIC ACID [Concomitant]

REACTIONS (10)
  - ACUTE RESPIRATORY DISTRESS SYNDROME [None]
  - ARTERIOSCLEROSIS [None]
  - COLON GANGRENE [None]
  - DIALYSIS [None]
  - HYPOPERFUSION [None]
  - HYPOTENSION [None]
  - INTESTINAL INFARCTION [None]
  - INTESTINAL ISCHAEMIA [None]
  - PNEUMATOSIS [None]
  - RENAL FAILURE [None]
